FAERS Safety Report 23804172 (Version 1)
Quarter: 2024Q2

REPORT INFORMATION
  Report Type: Spontaneous
  Country: IT (occurrence: IT)
  Receive Date: 20240501
  Receipt Date: 20240501
  Transmission Date: 20240716
  Serious: Yes (Other)
  Sender: FDA-Public Use
  Company Number: None

PATIENT
  Age: 73 Year
  Sex: Male

DRUGS (2)
  1. FLUOROURACIL [Suspect]
     Active Substance: FLUOROURACIL
     Indication: Rectal cancer
     Dosage: FLUOROURACILE TEVA, 3RD CYCLE/1ST DAY FLUOROURACILE TEVA* 5G 100ML; DOSE ADMINISTERED: BOLUS 200 ...
     Route: 042
     Dates: start: 20231016
  2. OXALIPLATIN [Suspect]
     Active Substance: OXALIPLATIN
     Indication: Metastases to liver
     Dosage: 3RD CYCLE/1ST DAY OXALIPLATINUM ACC* 200MG 40ML ADMINISTERED AT A DOSAGE OF 50 MG I.V. ; PROTOCOL...
     Route: 042
     Dates: start: 20231016

REACTIONS (4)
  - Rectal haemorrhage [Recovered/Resolved]
  - Decreased appetite [Recovered/Resolved]
  - Back pain [Recovered/Resolved]
  - Asthenia [Recovered/Resolved]

NARRATIVE: CASE EVENT DATE: 20231101
